FAERS Safety Report 23654270 (Version 1)
Quarter: 2024Q1

REPORT INFORMATION
  Report Type: Spontaneous
  Country: US (occurrence: US)
  Receive Date: 20240320
  Receipt Date: 20240320
  Transmission Date: 20240409
  Serious: No
  Sender: FDA-Public Use
  Company Number: US-ACORDA-ACO_174516_2023

PATIENT
  Sex: Male

DRUGS (4)
  1. AMPYRA [Suspect]
     Active Substance: DALFAMPRIDINE
     Indication: Multiple sclerosis
     Dosage: UNK
     Route: 065
     Dates: start: 20170813
  2. TECFIDERA [Suspect]
     Active Substance: DIMETHYL FUMARATE
     Indication: Multiple sclerosis
     Dosage: 120 MILLIGRAM, BID
     Route: 050
     Dates: start: 20140418
  3. TECFIDERA [Suspect]
     Active Substance: DIMETHYL FUMARATE
     Dosage: 240 MILLIGRAM, BID MAINTENANCE DOSE
     Route: 050
  4. TECFIDERA [Suspect]
     Active Substance: DIMETHYL FUMARATE
     Dosage: UNK
     Route: 065
     Dates: start: 20210126, end: 20221213

REACTIONS (1)
  - No adverse event [Unknown]
